FAERS Safety Report 17174528 (Version 1)
Quarter: 2019Q4

REPORT INFORMATION
  Report Type: Spontaneous
  Country: US (occurrence: US)
  Receive Date: 20191219
  Receipt Date: 20191219
  Transmission Date: 20200122
  Serious: No
  Sender: FDA-Public Use
  Company Number: US-UCBSA-2014002899

PATIENT
  Age: 27 Year
  Sex: Female

DRUGS (1)
  1. CIMZIA [Suspect]
     Active Substance: CERTOLIZUMAB PEGOL
     Indication: ENTERITIS
     Dosage: 400 MG, EV 2 WEEKS(QOW), 400 MG, MONTHLY (QM), DOSE STRENGTH 200 MG
     Route: 058
     Dates: start: 20140210

REACTIONS (5)
  - Aggression [Unknown]
  - Bipolar disorder [Unknown]
  - Feeling abnormal [Unknown]
  - Anger [Unknown]
  - Weight increased [Unknown]

NARRATIVE: CASE EVENT DATE: 2014
